FAERS Safety Report 10716425 (Version 1)
Quarter: 2015Q1

REPORT INFORMATION
  Report Type: Spontaneous
  Country: US (occurrence: None)
  Receive Date: 20150115
  Receipt Date: 20150115
  Transmission Date: 20150721
  Serious: Yes (Hospitalization)
  Sender: FDA-Public Use
  Company Number: None

PATIENT
  Age: 72 Year
  Sex: Female
  Weight: 57.6 kg

DRUGS (4)
  1. TEMOZOLOMIDE. [Suspect]
     Active Substance: TEMOZOLOMIDE
     Dates: end: 20141228
  2. METHOTREXATE [Suspect]
     Active Substance: METHOTREXATE
     Dates: end: 20150101
  3. RITUXIMAB (MOAB C2B8 ANTI CD20, CHIMERIC) [Suspect]
     Active Substance: RITUXIMAB
     Dates: end: 20150102
  4. LEUCOVARIN CALCIUM FOR INJ - 50MG [Suspect]
     Active Substance: LEUCOVORIN CALCIUM
     Dates: end: 20150103

REACTIONS (4)
  - Asthenia [None]
  - Pyrexia [None]
  - Pulmonary embolism [None]
  - Rhinorrhoea [None]

NARRATIVE: CASE EVENT DATE: 20150105
